FAERS Safety Report 10486848 (Version 2)
Quarter: 2014Q4

REPORT INFORMATION
  Report Type: Report from Study
  Country: AU (occurrence: AU)
  Receive Date: 20141001
  Receipt Date: 20141022
  Transmission Date: 20150528
  Serious: Yes (Death)
  Sender: FDA-Public Use
  Company Number: PHHY2014AU127465

PATIENT
  Sex: Female

DRUGS (1)
  1. CLOZARIL [Suspect]
     Active Substance: CLOZAPINE
     Indication: SCHIZOPHRENIA
     Dosage: 300 (UNIT UNSPECIFIED)
     Route: 048
     Dates: start: 20010724

REACTIONS (2)
  - Renal failure [Fatal]
  - Breast cancer metastatic [Fatal]
